FAERS Safety Report 5532907-6 (Version None)
Quarter: 2007Q4

REPORT INFORMATION
  Report Type: 
  Country: None (occurrence: None)
  Receive Date: 20071204
  Receipt Date: 20071130
  Transmission Date: 20080405
  Serious: Yes (Death)
  Sender: FDA-Public Use
  Company Number: JP-AVENTIS-200712884JP

PATIENT
  Age: 66 Year
  Sex: Male
  Weight: 45 kg

DRUGS (7)
  1. TAXOTERE [Suspect]
     Indication: LUNG ADENOCARCINOMA STAGE IV
     Route: 041
     Dates: start: 20070921, end: 20070921
  2. TS-1 [Suspect]
     Indication: LUNG ADENOCARCINOMA STAGE IV
     Route: 048
     Dates: start: 20070921, end: 20071001
  3. FIRSTCIN [Concomitant]
     Indication: PNEUMONIA
     Route: 041
     Dates: start: 20071001, end: 20071004
  4. CIPROFLOXACIN [Concomitant]
     Indication: PNEUMONIA
     Route: 041
     Dates: start: 20071004, end: 20071022
  5. MEROPEN [Concomitant]
     Indication: PNEUMONIA
     Route: 041
     Dates: start: 20071004, end: 20071022
  6. CRAVIT [Concomitant]
     Indication: PNEUMONIA
     Dosage: DOSE: 2 TABLETS
     Route: 048
     Dates: start: 20070928, end: 20071003
  7. KADIAN [Concomitant]
     Route: 048
     Dates: start: 20070915, end: 20071020

REACTIONS (1)
  - PNEUMONITIS [None]
